FAERS Safety Report 9470288 (Version 1)
Quarter: 2013Q3

REPORT INFORMATION
  Report Type: Spontaneous
  Country: US (occurrence: US)
  Receive Date: 20130822
  Receipt Date: 20130822
  Transmission Date: 20140515
  Serious: No
  Sender: FDA-Public Use
  Company Number: US-SANOFI-AVENTIS-2012SA051025

PATIENT
  Age: 78 Year
  Sex: Female

DRUGS (5)
  1. MULTAQ [Suspect]
     Indication: ATRIAL FIBRILLATION
     Route: 048
     Dates: start: 2012
  2. RESTASIS [Suspect]
     Indication: DRY EYE
     Route: 047
     Dates: start: 201207
  3. CLONAZEPAM [Concomitant]
  4. TYLENOL [Concomitant]
     Indication: HEADACHE
  5. REFRESH [Concomitant]

REACTIONS (1)
  - Heart rate irregular [Recovered/Resolved]
